FAERS Safety Report 5567297-6 (Version None)
Quarter: 2007Q4

REPORT INFORMATION
  Report Type: 
  Country: None (occurrence: None)
  Receive Date: 20071219
  Receipt Date: 20070404
  Transmission Date: 20080405
  Serious: No
  Sender: FDA-Public Use
  Company Number: US-ABBOTT-07P-163-0364636-00

PATIENT
  Sex: Female
  Weight: 56.296 kg

DRUGS (2)
  1. DILAUDID [Suspect]
     Indication: PAIN
     Route: 048
     Dates: start: 20070301, end: 20070301
  2. CHEMOTHERAPY [Concomitant]
     Indication: DRUG USE FOR UNKNOWN INDICATION

REACTIONS (3)
  - ABDOMINAL DISTENSION [None]
  - ABDOMINAL PAIN UPPER [None]
  - CONSTIPATION [None]
